FAERS Safety Report 5700230-2 (Version None)
Quarter: 2008Q2

REPORT INFORMATION
  Report Type: 
  Country: None (occurrence: None)
  Receive Date: 20080410
  Receipt Date: 20080328
  Transmission Date: 20081010
  Serious: Yes (Death)
  Sender: FDA-Public Use
  Company Number: JP-ELI_LILLY_AND_COMPANY-JP200704005083

PATIENT
  Sex: Female
  Weight: 36 kg

DRUGS (4)
  1. RALOXIFENE HYDROCHLORIDE [Suspect]
     Indication: OSTEOPOROSIS POSTMENOPAUSAL
     Dosage: 60 MG, DAILY (1/D)
     Route: 048
     Dates: start: 20050107
  2. ALFAROL [Concomitant]
     Indication: OSTEOPOROSIS POSTMENOPAUSAL
     Dosage: 0.25 UG, DAILY (1/D)
     Route: 048
     Dates: end: 20061030
  3. ELCITONIN [Concomitant]
     Indication: OSTEOPOROSIS POSTMENOPAUSAL
     Dosage: 20 IU, ONCE PER TWO WEEKS
     Route: 030
     Dates: start: 20050304, end: 20061013
  4. EPOGIN [Concomitant]
     Indication: NEPHROGENIC ANAEMIA
     Dosage: 4500 IU, WEEKLY (1/W)
     Route: 042
     Dates: end: 20061103

REACTIONS (1)
  - RENAL FAILURE CHRONIC [None]
